FAERS Safety Report 11311382 (Version 1)
Quarter: 2015Q3

REPORT INFORMATION
  Report Type: Spontaneous
  Country: FR (occurrence: None)
  Receive Date: 20150723
  Receipt Date: 20150723
  Transmission Date: 20151125
  Serious: Yes (Life-Threatening)
  Sender: FDA-Public Use
  Company Number: 2015JUB00221

PATIENT
  Age: 53 Year
  Sex: Female

DRUGS (4)
  1. FOLIC ACID (FOLIC ACID) UNKNOWN [Suspect]
     Active Substance: FOLIC ACID
     Route: 048
  2. PREDNISONE. [Concomitant]
     Active Substance: PREDNISONE
  3. VITAMIN B 1 AND B6 COMPLEX (DIETARY SUPPLEMENT) [Concomitant]
  4. COMPLEX OF ACTIVATED CHARCOAL, MAGNESIUM OXIDE, AND SIMETHICONE (DIETARY SUPPLEMENT) [Concomitant]

REACTIONS (1)
  - Anaphylactic shock [None]
